FAERS Safety Report 17208958 (Version 1)
Quarter: 2019Q4

REPORT INFORMATION
  Report Type: Spontaneous
  Country: NL (occurrence: NL)
  Receive Date: 20191227
  Receipt Date: 20191227
  Transmission Date: 20200122
  Serious: Yes (Other)
  Sender: FDA-Public Use
  Company Number: NL-MYLANLABS-2019M1129209

PATIENT
  Age: 67 Year
  Sex: Female
  Weight: 49 kg

DRUGS (10)
  1. KALIUMCHLORIDE [Concomitant]
     Dosage: UNK
     Route: 041
  2. OMEPRAZOL                          /00661201/ [Concomitant]
     Active Substance: OMEPRAZOLE
     Dosage: 4DD1
  3. ANASTROZOL [Concomitant]
     Active Substance: ANASTROZOLE
     Dosage: 1DD1
  4. AMLODIPINE [Concomitant]
     Active Substance: AMLODIPINE BESYLATE
     Dosage: 1DD1
     Route: 048
  5. OXAZEPAM. [Concomitant]
     Active Substance: OXAZEPAM
     Dosage: 3DD1
  6. METOPROLOL. [Concomitant]
     Active Substance: METOPROLOL
     Dosage: 1DD1
  7. FRAXIPARINE [Concomitant]
     Active Substance: NADROPARIN CALCIUM
     Dosage: 1DD1
  8. OLANZAPINE. [Suspect]
     Active Substance: OLANZAPINE
     Indication: PSYCHOTIC DISORDER
     Dosage: 1X PER DAG 4 STUKS
     Route: 048
     Dates: start: 2010
  9. METOCLOPRAMIDE                     /00041902/ [Suspect]
     Active Substance: METOCLOPRAMIDE HYDROCHLORIDE
     Indication: VOMITING
     Dosage: MAX. 3X PER DAG 10 MG
     Dates: start: 20191104, end: 20191104
  10. LACTULOSESTROOP [Concomitant]
     Dosage: Z.N. 1X PER DAG 15 MILLILITER

REACTIONS (1)
  - Electrocardiogram QT interval abnormal [Not Recovered/Not Resolved]

NARRATIVE: CASE EVENT DATE: 20191104
